FAERS Safety Report 4519777-X (Version None)
Quarter: 2004Q4

REPORT INFORMATION
  Report Type: 
  Country: None (occurrence: None)
  Receive Date: 20041203
  Receipt Date: 20041203
  Transmission Date: 20050328
  Serious: Yes (Other)
  Sender: FDA-Public Use
  Company Number: None

PATIENT
  Age: 48 Year
  Sex: Female
  Weight: 54.4316 kg

DRUGS (4)
  1. SPECTRACEF [Suspect]
     Indication: BRONCHITIS
     Dosage: 400 MG  TWICE DAILY BUCCAL
     Route: 002
     Dates: start: 20041128, end: 20041129
  2. SPECTRACEF [Suspect]
     Indication: COUGH
     Dosage: 400 MG  TWICE DAILY BUCCAL
     Route: 002
     Dates: start: 20041128, end: 20041129
  3. HYROCODONE/HOMATROPINE SYRUP  NOT ON THE LABEL MORTON GROVE [Suspect]
     Indication: BRONCHITIS
     Dosage: 1TSP  EVERY 6 HRS BUCCAL
     Route: 002
     Dates: start: 20041128, end: 20041129
  4. HYROCODONE/HOMATROPINE SYRUP  NOT ON THE LABEL MORTON GROVE [Suspect]
     Indication: COUGH
     Dosage: 1TSP  EVERY 6 HRS BUCCAL
     Route: 002
     Dates: start: 20041128, end: 20041129

REACTIONS (3)
  - DIZZINESS [None]
  - VERTIGO [None]
  - VOMITING [None]
